FAERS Safety Report 6433303-X (Version None)
Quarter: 2009Q4

REPORT INFORMATION
  Report Type: 
  Country: None (occurrence: None)
  Receive Date: 20091109
  Receipt Date: 20091028
  Transmission Date: 20100525
  Serious: Yes (Other)
  Sender: FDA-Public Use
  Company Number: US-JNJCH-2009028816

PATIENT
  Age: 54 Year
  Sex: Female
  Weight: 66.7 kg

DRUGS (2)
  1. LISTERINE TOOTH DEFENSE [Suspect]
     Indication: DENTAL DISORDER PROPHYLAXIS
     Dosage: TEXT:1 OZ ONCE DAILY
     Route: 048
     Dates: start: 20090915, end: 20090917
  2. NEXIUM [Concomitant]
     Indication: GASTROOESOPHAGEAL REFLUX DISEASE
     Dosage: TEXT:ONE 40MG ONCE A DAY
     Route: 065

REACTIONS (3)
  - APPLICATION SITE ANAESTHESIA [None]
  - APPLICATION SITE PAIN [None]
  - INCORRECT DOSE ADMINISTERED [None]
